FAERS Safety Report 7704951-1 (Version None)
Quarter: 2011Q3

REPORT INFORMATION
  Report Type: 
  Country: None (occurrence: None)
  Receive Date: 20110823
  Receipt Date: 20110818
  Transmission Date: 20111222
  Serious: Yes (Other)
  Sender: FDA-Public Use
  Company Number: US-PFIZER INC-2011186307

PATIENT
  Age: 12 Month
  Sex: Female

DRUGS (1)
  1. EFFEXOR XR [Suspect]
     Indication: DEPRESSION
     Dosage: UNK
     Route: 050
     Dates: start: 20090101

REACTIONS (2)
  - CONVULSION [None]
  - MATERNAL EXPOSURE DURING PREGNANCY [None]
